FAERS Safety Report 18452529 (Version 1)
Quarter: 2020Q4

REPORT INFORMATION
  Report Type: Spontaneous
  Country: FI (occurrence: FI)
  Receive Date: 20201102
  Receipt Date: 20201102
  Transmission Date: 20210114
  Serious: Yes (Life-Threatening)
  Sender: FDA-Public Use
  Company Number: FI-BEH-2020124126

PATIENT
  Age: 41 Year
  Sex: Female

DRUGS (13)
  1. EMEND [Concomitant]
     Active Substance: APREPITANT
     Indication: PROPHYLAXIS OF NAUSEA AND VOMITING
  2. FENTANYL. [Concomitant]
     Active Substance: FENTANYL
     Indication: INDUCTION OF ANAESTHESIA
  3. SEVOFLURANE. [Concomitant]
     Active Substance: SEVOFLURANE
  4. ESMERON [Suspect]
     Active Substance: ROCURONIUM BROMIDE
     Indication: HYPOTONIA
     Route: 065
     Dates: start: 20200929, end: 20200929
  5. CLINDAMYCIN FRESENIUS KABI [Suspect]
     Active Substance: CLINDAMYCIN PHOSPHATE
     Indication: ANTIBIOTIC PROPHYLAXIS
     Route: 065
     Dates: start: 20200929, end: 20200929
  6. PROPOFOL. [Concomitant]
     Active Substance: PROPOFOL
     Indication: INDUCTION OF ANAESTHESIA
  7. DIAPAM [DIAZEPAM] [Concomitant]
     Indication: NERVOUSNESS
  8. REMIFENTANIL [Concomitant]
     Active Substance: REMIFENTANIL
  9. ALBUREX [Suspect]
     Active Substance: ALBUMIN HUMAN
     Indication: BLOOD VOLUME EXPANSION
     Route: 065
     Dates: start: 20200929, end: 20200929
  10. FENTANYL. [Concomitant]
     Active Substance: FENTANYL
     Indication: INDUCTION OF ANAESTHESIA
  11. EMEND [Concomitant]
     Active Substance: APREPITANT
     Indication: PROPHYLAXIS OF NAUSEA AND VOMITING
  12. PROPOFOL. [Concomitant]
     Active Substance: PROPOFOL
     Indication: INDUCTION OF ANAESTHESIA
  13. DIAPAM [DIAZEPAM] [Concomitant]
     Indication: NERVOUSNESS

REACTIONS (1)
  - Anaphylactic reaction [Recovered/Resolved]

NARRATIVE: CASE EVENT DATE: 20200929
